FAERS Safety Report 22223034 (Version 1)
Quarter: 2023Q2

REPORT INFORMATION
  Report Type: Report from Study
  Country: IT (occurrence: IT)
  Receive Date: 20230418
  Receipt Date: 20230418
  Transmission Date: 20230722
  Serious: Yes (Death)
  Sender: FDA-Public Use
  Company Number: IT-MYLANLABS-2023M1041224

PATIENT
  Age: 20 Year
  Sex: Female

DRUGS (6)
  1. DOXORUBICIN [Suspect]
     Active Substance: DOXORUBICIN
     Indication: Alveolar rhabdomyosarcoma
     Dosage: UNK, SCHEDULED TO RECEIVE FOUR CYCLES OF IVADO REGIMEN CONSISTING OF IFOSFAMIDE, DACTINOMYCIN....
     Route: 065
  2. DOXORUBICIN [Suspect]
     Active Substance: DOXORUBICIN
     Indication: Metastatic neoplasm
  3. IFOSFAMIDE [Suspect]
     Active Substance: IFOSFAMIDE
     Indication: Alveolar rhabdomyosarcoma
     Dosage: UNK, SCHEDULED TO RECEIVE FOUR CYCLES OF IVADO REGIMEN CONSISTING OF IFOSFAMIDE, DACTINOMYCIN....
     Route: 065
  4. IFOSFAMIDE [Suspect]
     Active Substance: IFOSFAMIDE
     Indication: Metastatic neoplasm
     Dosage: UNK, FOLLOWED BY FIVE CYCLES OF IVA REGIMEN CONSISTING OF IFOSFAMIDE AND DACTINOMYCIN
     Route: 065
  5. ACTINOMYCIN D [Suspect]
     Active Substance: DACTINOMYCIN
     Indication: Alveolar rhabdomyosarcoma
     Dosage: UNK, SCHEDULED TO RECEIVE FOUR CYCLES OF IVADO REGIMEN CONSISTING OF IFOSFAMIDE, DACTINOMYCIN....
     Route: 065
  6. ACTINOMYCIN D [Suspect]
     Active Substance: DACTINOMYCIN
     Indication: Metastatic neoplasm
     Dosage: UNK, FOLLOWED BY FIVE CYCLES OF IVA REGIMEN CONSISTING OF IFOSFAMIDE AND DACTINOMYCIN
     Route: 065

REACTIONS (1)
  - Drug ineffective [Fatal]
